FAERS Safety Report 20357623 (Version 1)
Quarter: 2022Q1

REPORT INFORMATION
  Report Type: Spontaneous
  Country: US (occurrence: None)
  Receive Date: 20220120
  Receipt Date: 20220120
  Transmission Date: 20220424
  Serious: Yes (Life-Threatening, Other)
  Sender: FDA-Public Use
  Company Number: None

PATIENT
  Age: 54 Year
  Sex: Female
  Weight: 51.3 kg

DRUGS (1)
  1. PRIVIGEN [Suspect]
     Active Substance: HUMAN IMMUNOGLOBULIN G
     Indication: Immune system disorder
     Dosage: FREQUENCY : MONTHLY;?OTHER ROUTE : INFUSION INTO PORT A CATH;?
     Route: 050
     Dates: start: 20210930

REACTIONS (2)
  - Rash [None]
  - Mucosal disorder [None]

NARRATIVE: CASE EVENT DATE: 20210930
